FAERS Safety Report 8227425-0 (Version None)
Quarter: 2012Q1

REPORT INFORMATION
  Report Type: 
  Country: None (occurrence: None)
  Receive Date: 20120322
  Receipt Date: 20120309
  Transmission Date: 20120608
  Serious: Yes (Other)
  Sender: FDA-Public Use
  Company Number: BR-AMGEN-US427949

PATIENT
  Age: 48 Year
  Sex: Female

DRUGS (12)
  1. CLONAZEPAM [Concomitant]
     Dosage: 4 MG, QD
     Dates: end: 20100101
  2. ENBREL [Suspect]
     Indication: RHEUMATOID ARTHRITIS
     Dosage: 50 MG, QWK
     Route: 058
  3. PRISTIQ [Concomitant]
     Indication: PANIC ATTACK
     Dosage: 50 MG, QD
     Route: 048
  4. CLONAZEPAM [Concomitant]
     Dosage: UNK
     Route: 065
     Dates: start: 20100101
  5. FOLIC ACID [Concomitant]
     Dosage: UNK
  6. GABAPENTIN [Concomitant]
     Dosage: UNK
  7. PRISTIQ [Concomitant]
     Route: 048
  8. METHOTREXATE [Concomitant]
     Dosage: UNK
  9. VITAMIN B1 TAB [Concomitant]
     Dosage: UNK
  10. LYRICA [Concomitant]
     Indication: PAIN
     Dosage: UNK
  11. CLONAZEPAM [Concomitant]
     Dosage: 4 MG, 1X/DAY
     Route: 065
  12. CYCLOBENZAPRINE HCL [Concomitant]
     Dosage: UNK

REACTIONS (11)
  - RHEUMATOID ARTHRITIS [None]
  - DECREASED IMMUNE RESPONSIVENESS [None]
  - MUSCULOSKELETAL PAIN [None]
  - WALKING AID USER [None]
  - PANIC ATTACK [None]
  - PAIN IN EXTREMITY [None]
  - WRONG TECHNIQUE IN DRUG USAGE PROCESS [None]
  - SINUSITIS [None]
  - EMOTIONAL DISORDER [None]
  - ARTHRALGIA [None]
  - INJECTION SITE PAIN [None]
